FAERS Safety Report 4875516-4 (Version None)
Quarter: 2006Q1

REPORT INFORMATION
  Report Type: 
  Country: None (occurrence: None)
  Receive Date: 20060109
  Receipt Date: 20051230
  Transmission Date: 20060701
  Serious: Yes (Other)
  Sender: FDA-Public Use
  Company Number: PHBS2005ES19189

PATIENT
  Age: 65 Year
  Sex: Female

DRUGS (2)
  1. ZOMETA [Suspect]
     Indication: MULTIPLE MYELOMA
     Dosage: UNK, QMO
     Route: 042
     Dates: start: 20010101
  2. LEVOTHROID [Concomitant]

REACTIONS (4)
  - BONE DISORDER [None]
  - BONE PAIN [None]
  - INFECTION [None]
  - OSTEONECROSIS [None]
